FAERS Safety Report 8494246-3 (Version None)
Quarter: 2012Q3

REPORT INFORMATION
  Report Type: 
  Country: None (occurrence: None)
  Receive Date: 20120709
  Receipt Date: 20120704
  Transmission Date: 20120928
  Serious: Yes (Other)
  Sender: FDA-Public Use
  Company Number: PHFR2012GB003840

PATIENT
  Sex: Male

DRUGS (2)
  1. OLANZAPINE [Concomitant]
  2. CLOZARIL [Suspect]
     Indication: SCHIZOPHRENIA
     Route: 048
     Dates: start: 20081105, end: 20090123

REACTIONS (1)
  - TRICUSPID VALVE INCOMPETENCE [None]
